FAERS Safety Report 7340797-4 (Version None)
Quarter: 2011Q1

REPORT INFORMATION
  Report Type: 
  Country: None (occurrence: None)
  Receive Date: 20110301
  Receipt Date: 20110221
  Transmission Date: 20110831
  Serious: Yes (Hospitalization, Other)
  Sender: FDA-Public Use
  Company Number: 2010SP056526

PATIENT
  Age: 28 Year
  Sex: Female
  Weight: 54.4316 kg

DRUGS (3)
  1. ASPIRIN [Concomitant]
  2. NUVARING [Suspect]
     Indication: CONTRACEPTION
     Dates: start: 20070101, end: 20081101
  3. NUVARING [Suspect]
     Indication: CONTRACEPTION
     Dates: start: 20090101

REACTIONS (7)
  - PNEUMONIA [None]
  - PULMONARY EMBOLISM [None]
  - DEEP VEIN THROMBOSIS [None]
  - HYPERCOAGULATION [None]
  - PAIN [None]
  - PULMONARY HAEMORRHAGE [None]
  - MULTIPLE INJURIES [None]
